FAERS Safety Report 19807058 (Version 1)
Quarter: 2021Q3

REPORT INFORMATION
  Report Type: Report from Study
  Country: CH (occurrence: CH)
  Receive Date: 20210909
  Receipt Date: 20210909
  Transmission Date: 20211014
  Serious: Yes (Hospitalization, Other)
  Sender: FDA-Public Use
  Company Number: CH-SNT-000175

PATIENT
  Age: 38 Year
  Sex: Male

DRUGS (3)
  1. BUPROPION. [Suspect]
     Active Substance: BUPROPION
     Indication: DEPRESSION
     Dosage: 300 MG/D
     Route: 065
     Dates: start: 20191217
  2. BUPROPION. [Suspect]
     Active Substance: BUPROPION
     Indication: DEPRESSION
     Dosage: 400 MG/D
     Route: 065
     Dates: start: 20191107
  3. BUPROPION. [Suspect]
     Active Substance: BUPROPION
     Indication: DEPRESSION
     Dosage: 1050 MG/D
     Route: 065
     Dates: start: 20191128

REACTIONS (5)
  - Prescribed overdose [Unknown]
  - Drug ineffective [Unknown]
  - Hallucinations, mixed [Unknown]
  - Condition aggravated [Unknown]
  - Antidepressant drug level below therapeutic [Unknown]
